FAERS Safety Report 6540479-2 (Version None)
Quarter: 2010Q1

REPORT INFORMATION
  Report Type: 
  Country: None (occurrence: None)
  Receive Date: 20100113
  Receipt Date: 20100104
  Transmission Date: 20100710
  Serious: Yes (Hospitalization)
  Sender: FDA-Public Use
  Company Number: 2009US003577

PATIENT
  Age: 51 Year
  Sex: Female
  Weight: 85 kg

DRUGS (5)
  1. AMEVIVE [Suspect]
     Indication: PSORIASIS
     Dosage: 15 MG, WEEKLY, INTRAMUSCULAR
     Route: 030
     Dates: start: 20050405, end: 20050614
  2. CELEXA (CELECOXIB) [Concomitant]
  3. NORVASC [Concomitant]
  4. NEORAL [Concomitant]
  5. ENBREL [Concomitant]

REACTIONS (3)
  - BREAST CELLULITIS [None]
  - BREAST HAEMATOMA [None]
  - HAEMATOMA INFECTION [None]
